FAERS Safety Report 6592754-3 (Version None)
Quarter: 2010Q1

REPORT INFORMATION
  Report Type: 
  Country: None (occurrence: None)
  Receive Date: 20100212
  Receipt Date: 20100201
  Transmission Date: 20100710
  Serious: Yes (Hospitalization)
  Sender: FDA-Public Use
  Company Number: 1000011742

PATIENT
  Age: 58 Year
  Sex: Male

DRUGS (2)
  1. LEXAPRO [Suspect]
     Dosage: 10 MG, ORAL
     Route: 048
     Dates: start: 20091029
  2. TRIAZOLAM (TABLETS) [Concomitant]

REACTIONS (1)
  - HEPATITIS [None]
